FAERS Safety Report 9828280 (Version 3)
Quarter: 2014Q1

REPORT INFORMATION
  Report Type: Spontaneous
  Country: US (occurrence: US)
  Receive Date: 20140117
  Receipt Date: 20140212
  Transmission Date: 20141002
  Serious: Yes (Hospitalization, Other)
  Sender: FDA-Public Use
  Company Number: US-BAYER-2014-007591

PATIENT
  Age: 29 Year
  Sex: Female
  Weight: 62.59 kg

DRUGS (26)
  1. OCELLA [Suspect]
     Dosage: UNK
     Dates: start: 20100321, end: 20110727
  2. YASMIN [Suspect]
  3. RITALIN LA [Concomitant]
     Dosage: 20 MG, UNK
  4. VENLAFAXINE HYDROCHLORIDE [Concomitant]
     Dosage: 37.5 MG, UNK
  5. PROVENTIL HFA [Concomitant]
  6. METHYLPHENIDATE - SLOW RELEASE [Concomitant]
     Dosage: 20 MG, UNK
  7. LEVOCARNITINE [Concomitant]
     Dosage: 330 MG, UNK
  8. NAPROXEN [Concomitant]
     Dosage: 500 MG, UNK
  9. PROVIGIL [Concomitant]
     Dosage: 200 MG, BID
  10. PROVIGIL [Concomitant]
     Dosage: 200 MG, BID
  11. COENZYME Q10 [Concomitant]
     Dosage: 400 MG, BID
     Route: 048
  12. CARNITINE [Concomitant]
     Dosage: 990 MG, TID
  13. AMITRIPTYLINE [Concomitant]
     Dosage: 10 MG, DAILY AT BED TIME
  14. AMITRIPTYLINE [Concomitant]
     Dosage: 50 MG, QD
  15. EFFEXOR [Concomitant]
     Dosage: 37.5 MG, QD
  16. MAGNESIUM OXIDE [Concomitant]
     Dosage: 400 MG, MORNING
  17. MAGNESIUM OXIDE [Concomitant]
     Dosage: 200 MG, AT NOON TIME
  18. MAGNESIUM OXIDE [Concomitant]
     Dosage: 500 MG, QD
  19. CREATININE [Concomitant]
     Dosage: 2.5 G, BID
  20. ALPHA LIPOIC ACID [Concomitant]
     Dosage: 600 MG, QD
  21. RIBOFLAVIN [Concomitant]
     Dosage: 250 MG, BID
  22. NICOTINE [Concomitant]
     Dosage: 14 MG, QD
  23. VITAMIN D2 [Concomitant]
  24. VITAMIN D [Concomitant]
  25. VITAMIN E [Concomitant]
  26. LIPOIC ACID [Concomitant]
     Dosage: 600 MG, QD

REACTIONS (6)
  - Deep vein thrombosis [None]
  - Pulmonary embolism [Recovered/Resolved]
  - Pulmonary infarction [None]
  - Pleural effusion [Recovered/Resolved]
  - Hypoxia [Recovered/Resolved]
  - Pneumothorax [Recovered/Resolved]
